FAERS Safety Report 6248215-4 (Version None)
Quarter: 2009Q2

REPORT INFORMATION
  Report Type: 
  Country: None (occurrence: None)
  Receive Date: 20090629
  Receipt Date: 20090212
  Transmission Date: 20091009
  Serious: No
  Sender: FDA-Public Use
  Company Number: A0769183A

PATIENT
  Age: 57 Year
  Sex: Female

DRUGS (4)
  1. ALBUTEROL [Suspect]
     Indication: DRUG USE FOR UNKNOWN INDICATION
  2. PRIMATENE MIST [Suspect]
     Indication: DRUG USE FOR UNKNOWN INDICATION
  3. CLARITIN [Suspect]
     Indication: DRUG USE FOR UNKNOWN INDICATION
  4. UNSPECIFIED MEDICATION [Concomitant]

REACTIONS (2)
  - DYSPNOEA [None]
  - MALAISE [None]
